FAERS Safety Report 4922115-1 (Version None)
Quarter: 2006Q1

REPORT INFORMATION
  Report Type: 
  Country: None (occurrence: None)
  Receive Date: 20060222
  Receipt Date: 20060222
  Transmission Date: 20060701
  Serious: Yes (Hospitalization)
  Sender: FDA-Public Use
  Company Number: None

PATIENT
  Age: 73 Year
  Sex: Male
  Weight: 61 kg

DRUGS (14)
  1. ATIVAN [Suspect]
     Indication: AGITATION
     Dosage: 1 MG Q 4HR PRN IV
     Route: 042
     Dates: start: 20051112, end: 20051114
  2. VERAPAMIL [Concomitant]
  3. TEMAZEPAM [Concomitant]
  4. SIMVASTATIN [Concomitant]
  5. NITROGLYCERIN [Concomitant]
  6. METOPROLOL [Concomitant]
  7. LISINOPRIL [Concomitant]
  8. IPR INH [Concomitant]
  9. SSI [Concomitant]
  10. HYDROCHLOROTHIAZIDE [Concomitant]
  11. GLYBURIDE [Concomitant]
  12. ASPIRIN [Concomitant]
  13. ALB. INH [Concomitant]
  14. LORTAB [Concomitant]

REACTIONS (8)
  - ASPIRATION [None]
  - ASTHENIA [None]
  - BRONCHIAL OBSTRUCTION [None]
  - CHEST PAIN [None]
  - DYSPNOEA [None]
  - HAEMOPTYSIS [None]
  - HYPOXIA [None]
  - TROPONIN INCREASED [None]
